FAERS Safety Report 4728324-9 (Version None)
Quarter: 2005Q3

REPORT INFORMATION
  Report Type: 
  Country: None (occurrence: None)
  Receive Date: 20050727
  Receipt Date: 20050714
  Transmission Date: 20060218
  Serious: Yes (Other)
  Sender: FDA-Public Use
  Company Number: 2004063520

PATIENT
  Age: 33 Year
  Sex: Female
  Weight: 58.9676 kg

DRUGS (17)
  1. NEURONTIN [Suspect]
     Indication: ANXIETY
     Dosage: 300 MG (300 MG, 1 IN 1 D), ORAL
     Route: 048
     Dates: start: 20040401
  2. NEURONTIN [Suspect]
     Indication: DEPRESSION
     Dosage: 300 MG (300 MG, 1 IN 1 D), ORAL
     Route: 048
     Dates: start: 20040401
  3. NEURONTIN [Suspect]
     Indication: PANIC ATTACK
     Dosage: 300 MG (300 MG, 1 IN 1 D), ORAL
     Route: 048
     Dates: start: 20040401
  4. NEURONTIN [Suspect]
     Indication: POST-TRAUMATIC STRESS DISORDER
     Dosage: 300 MG (300 MG, 1 IN 1 D), ORAL
     Route: 048
     Dates: start: 20040401
  5. ZOLOFT [Suspect]
     Indication: ANXIETY
     Dosage: (1 IN 1 D), ORAL
     Route: 048
     Dates: start: 20040801, end: 20040902
  6. ZOLOFT [Suspect]
     Indication: DEPRESSION
     Dosage: (1 IN 1 D), ORAL
     Route: 048
     Dates: start: 20040801, end: 20040902
  7. ZOLOFT [Suspect]
     Indication: POST-TRAUMATIC STRESS DISORDER
     Dosage: (1 IN 1 D), ORAL
     Route: 048
     Dates: start: 20040801, end: 20040902
  8. XANAX [Suspect]
     Indication: ILL-DEFINED DISORDER
  9. LEXAPRO (ESCITALOPRAM)Q [Suspect]
     Indication: ANXIETY
     Dates: end: 20040501
  10. LEXAPRO (ESCITALOPRAM)Q [Suspect]
     Indication: DEPRESSION
     Dates: end: 20040501
  11. LEXAPRO (ESCITALOPRAM)Q [Suspect]
     Indication: PANIC DISORDER
     Dates: end: 20040501
  12. GABAPENTIN [Suspect]
     Indication: ILL-DEFINED DISORDER
     Dosage: ORAL
     Route: 048
  13. CLARITIN [Suspect]
     Indication: MULTIPLE ALLERGIES
     Dosage: ORAL
     Route: 048
  14. BUSPAR [Concomitant]
  15. PROZAC [Concomitant]
  16. ZYPREKA [Concomitant]
  17. ZYRTEC [Concomitant]

REACTIONS (21)
  - ALOPECIA [None]
  - ANXIETY [None]
  - BODY HEIGHT DECREASED [None]
  - CHEST DISCOMFORT [None]
  - DEPRESSION [None]
  - DISTURBANCE IN ATTENTION [None]
  - DIVORCED [None]
  - DRUG INEFFECTIVE [None]
  - DRUG INTERACTION [None]
  - DYSPNOEA [None]
  - FEELING ABNORMAL [None]
  - HEADACHE [None]
  - HEART RATE INCREASED [None]
  - MOOD ALTERED [None]
  - MYOCARDIAL INFARCTION [None]
  - NECK PAIN [None]
  - PANIC ATTACK [None]
  - PSYCHOMOTOR HYPERACTIVITY [None]
  - ROAD TRAFFIC ACCIDENT [None]
  - STRESS [None]
  - SUICIDAL IDEATION [None]
